FAERS Safety Report 8598480-3 (Version None)
Quarter: 2012Q3

REPORT INFORMATION
  Report Type: 
  Country: None (occurrence: None)
  Receive Date: 20120816
  Receipt Date: 20120814
  Transmission Date: 20120928
  Serious: Yes (Other)
  Sender: FDA-Public Use
  Company Number: PHHY2012CA070346

PATIENT
  Sex: Female

DRUGS (2)
  1. ZOLEDRONOC ACID [Suspect]
     Indication: OSTEOPOROSIS
     Route: 042
     Dates: start: 20101013
  2. ZOLEDRONOC ACID [Suspect]
     Route: 042
     Dates: start: 20111012

REACTIONS (3)
  - BACK DISORDER [None]
  - GAIT DISTURBANCE [None]
  - TOOTH FRACTURE [None]
